FAERS Safety Report 6800081-1 (Version None)
Quarter: 2010Q2

REPORT INFORMATION
  Report Type: 
  Country: None (occurrence: None)
  Receive Date: 20100617
  Receipt Date: 20100611
  Transmission Date: 20101027
  Serious: Yes (Death)
  Sender: FDA-Public Use
  Company Number: 2010SP028229

PATIENT
  Age: 44 Year
  Weight: 62 kg

DRUGS (2)
  1. PEG-INTRON [Suspect]
     Indication: DRUG USE FOR UNKNOWN INDICATION
     Dosage: 100 MCG;QW;
     Dates: start: 20070309, end: 20080125
  2. REBETOL [Suspect]
     Indication: DRUG USE FOR UNKNOWN INDICATION
     Dosage: 1000 MG;QD
     Dates: start: 20070309, end: 20080130

REACTIONS (2)
  - OVERDOSE [None]
  - POISONING [None]
